FAERS Safety Report 8165667-3 (Version None)
Quarter: 2012Q1

REPORT INFORMATION
  Report Type: 
  Country: None (occurrence: None)
  Receive Date: 20120223
  Receipt Date: 20120223
  Transmission Date: 20120608
  Serious: Yes (Hospitalization)
  Sender: FDA-Public Use
  Company Number: None

PATIENT
  Age: 25 Year
  Sex: Male
  Weight: 185 kg

DRUGS (2)
  1. CHANTIX [Suspect]
     Indication: SMOKING CESSATION THERAPY
     Dosage: 1 PILL 1ST WEEK
     Dates: start: 20111201
  2. CHANTIX [Suspect]
     Indication: SMOKING CESSATION THERAPY
     Dosage: 1 PILL 1ST WEEK
     Dates: start: 20111208

REACTIONS (5)
  - INSOMNIA [None]
  - IMPRISONMENT [None]
  - AGGRESSION [None]
  - SUICIDAL IDEATION [None]
  - HALLUCINATION [None]
